FAERS Safety Report 19002095 (Version 1)
Quarter: 2021Q1

REPORT INFORMATION
  Report Type: Spontaneous
  Country: US (occurrence: US)
  Receive Date: 20210311
  Receipt Date: 20210311
  Transmission Date: 20210420
  Serious: Yes (Death)
  Sender: FDA-Public Use
  Company Number: None

PATIENT
  Age: 76 Year
  Sex: Male

DRUGS (12)
  1. VYNDAQEL [Suspect]
     Active Substance: TAFAMIDIS MEGLUMINE
     Indication: CARDIOMYOPATHY
     Route: 048
     Dates: start: 20200110, end: 20210221
  2. BACLOFEN. [Concomitant]
     Active Substance: BACLOFEN
  3. ALBUTEROL HFA [Concomitant]
     Active Substance: ALBUTEROL SULFATE
  4. ALLOPURINOL. [Concomitant]
     Active Substance: ALLOPURINOL
  5. AMOXICILLIN. [Concomitant]
     Active Substance: AMOXICILLIN
  6. OPTICHAMBER DIA LG [Concomitant]
  7. SPIRONOLACT [Concomitant]
     Active Substance: SPIRONOLACTONE
  8. HYDROCHLOROT [Concomitant]
     Active Substance: HYDROCHLOROTHIAZIDE
  9. TRAMADOL HCL [Concomitant]
     Active Substance: TRAMADOL HYDROCHLORIDE
  10. TIZANIDINE. [Concomitant]
     Active Substance: TIZANIDINE
  11. SAVAYSA [Concomitant]
     Active Substance: EDOXABAN TOSYLATE
  12. TORSEMIDE. [Concomitant]
     Active Substance: TORSEMIDE

REACTIONS (1)
  - Death [None]

NARRATIVE: CASE EVENT DATE: 20210221
